FAERS Safety Report 6427600-1 (Version None)
Quarter: 2009Q4

REPORT INFORMATION
  Report Type: 
  Country: None (occurrence: None)
  Receive Date: 20091104
  Receipt Date: 20091023
  Transmission Date: 20100525
  Serious: Yes (Other)
  Sender: FDA-Public Use
  Company Number: JP-PFIZER INC-2009281687

PATIENT
  Age: 46 Year
  Sex: Male

DRUGS (10)
  1. SOLANAX [Suspect]
     Indication: PANIC DISORDER
     Dosage: 0.4 MG, 3X/DAY
     Route: 048
     Dates: start: 20051021
  2. SOLANAX [Suspect]
     Indication: DEPRESSION
  3. ZOLOFT [Suspect]
     Indication: DEPRESSION
     Dosage: 100 MG, 1X/DAY
     Route: 048
     Dates: start: 20080125
  4. ZOLOFT [Suspect]
     Indication: PANIC DISORDER
  5. DEPAS [Suspect]
     Indication: PANIC DISORDER
     Dosage: 1 MG, 3X/DAY
     Route: 048
     Dates: start: 20051012
  6. DEPAS [Suspect]
     Indication: DEPRESSION
  7. MYSLEE [Suspect]
     Indication: INSOMNIA
     Dosage: UNK
     Route: 048
     Dates: start: 20080125
  8. ALCOHOL [Suspect]
  9. TRIAZOLAM [Suspect]
     Indication: INSOMNIA
     Route: 048
     Dates: start: 20090724
  10. TRAZODONE [Concomitant]
     Indication: INSOMNIA
     Dosage: UNK
     Route: 048
     Dates: start: 20081211

REACTIONS (4)
  - AGITATION [None]
  - ANTEROGRADE AMNESIA [None]
  - DEPRESSION [None]
  - SEXUAL ABUSE [None]
